FAERS Safety Report 9255524 (Version 1)
Quarter: 2013Q2

REPORT INFORMATION
  Report Type: Spontaneous
  Country: US (occurrence: US)
  Receive Date: 20130425
  Receipt Date: 20130425
  Transmission Date: 20140414
  Serious: Yes (Death)
  Sender: FDA-Public Use
  Company Number: US-MPIJNJ-2013-02913

PATIENT
  Age: 70 Year
  Sex: Male

DRUGS (1)
  1. VELCADE [Suspect]
     Indication: PLASMA CELL MYELOMA
     Route: 065

REACTIONS (2)
  - Death [Fatal]
  - Tremor [Unknown]
